FAERS Safety Report 9000072 (Version 2)
Quarter: 2013Q4

REPORT INFORMATION
  Report Type: Spontaneous
  Country: US (occurrence: US)
  Receive Date: 20130102
  Receipt Date: 20131213
  Transmission Date: 20140711
  Serious: Yes (Death)
  Sender: FDA-Public Use
  Company Number: US-BRISTOL-MYERS SQUIBB COMPANY-17238916

PATIENT
  Age: 74 Year
  Sex: Female
  Weight: 88.08 kg

DRUGS (5)
  1. YERVOY [Suspect]
     Indication: MALIGNANT MELANOMA
     Dosage: TOTAL DOSE:264 MG
     Route: 042
     Dates: start: 20121213, end: 20121213
  2. YERVOY [Suspect]
     Indication: METASTASES TO LIVER
     Dosage: TOTAL DOSE:264 MG
     Route: 042
     Dates: start: 20121213, end: 20121213
  3. ACETAMINOPHEN [Concomitant]
  4. DILAUDID [Concomitant]
  5. ZOFRAN [Concomitant]

REACTIONS (3)
  - Acute hepatic failure [Fatal]
  - Shock [Fatal]
  - Tumour lysis syndrome [Fatal]
